FAERS Safety Report 20000191 (Version 3)
Quarter: 2021Q4

REPORT INFORMATION
  Report Type: Spontaneous
  Country: US (occurrence: US)
  Receive Date: 20211026
  Receipt Date: 20211231
  Transmission Date: 20220303
  Serious: No
  Sender: FDA-Public Use
  Company Number: US-VIFOR (INTERNATIONAL) INC.-VIT-2021-07926

PATIENT
  Age: 87 Year
  Sex: Female

DRUGS (7)
  1. VELTASSA [Suspect]
     Active Substance: PATIROMER
     Indication: Hyperkalaemia
     Dosage: 1/2 PACKET
     Dates: start: 2020
  2. VELTASSA [Suspect]
     Active Substance: PATIROMER
     Dosage: FULL DOSE
  3. VELTASSA [Suspect]
     Active Substance: PATIROMER
     Dosage: FULL DOSE
  4. VELTASSA [Suspect]
     Active Substance: PATIROMER
     Dosage: 1/2 DOSE
     Dates: start: 202110
  5. ALPRAZOLAM [Concomitant]
     Active Substance: ALPRAZOLAM
     Dosage: 1/2 TABLET
  6. DOXAZOSIN [Concomitant]
     Active Substance: DOXAZOSIN MESYLATE
  7. CARVEDILOL [Concomitant]
     Active Substance: CARVEDILOL

REACTIONS (10)
  - Dyspnoea [Recovered/Resolved]
  - Cough [Recovered/Resolved]
  - Eructation [Recovered/Resolved]
  - Drug intolerance [Recovered/Resolved]
  - Flatulence [Recovered/Resolved]
  - Abdominal discomfort [Recovered/Resolved]
  - Off label use [Unknown]
  - Product dose omission issue [Unknown]
  - Product colour issue [Unknown]
  - Product use complaint [Recovered/Resolved]

NARRATIVE: CASE EVENT DATE: 20211001
